FAERS Safety Report 6651112-3 (Version None)
Quarter: 2010Q1

REPORT INFORMATION
  Report Type: 
  Country: None (occurrence: None)
  Receive Date: 20100325
  Receipt Date: 20100301
  Transmission Date: 20100710
  Serious: Yes (Death, Hospitalization, Other)
  Sender: FDA-Public Use
  Company Number: MX-SANOFI-AVENTIS-200917040GDDC

PATIENT
  Age: 75 Year
  Sex: Male

DRUGS (7)
  1. DOCETAXEL [Suspect]
     Dosage: DOSE UNIT: 75 MG/M**2
     Route: 041
     Dates: start: 20090618, end: 20090618
  2. BLINDED THERAPY [Suspect]
     Route: 048
     Dates: start: 20090518
  3. PREDNISONE [Suspect]
     Route: 048
     Dates: start: 20090618
  4. DEXAMETHASONE [Suspect]
     Indication: PREMEDICATION
  5. OMEPRAZOLE [Concomitant]
     Dates: start: 20090620, end: 20090727
  6. ENOXAPARIN SODIUM [Concomitant]
     Dates: start: 20090620, end: 20090727
  7. MEROPENEM [Concomitant]
     Dates: start: 20090628, end: 20090726

REACTIONS (10)
  - DIARRHOEA [None]
  - FEMUR FRACTURE [None]
  - GASTROINTESTINAL HAEMORRHAGE [None]
  - LEUKOPENIA [None]
  - METABOLIC ACIDOSIS [None]
  - MULTI-ORGAN FAILURE [None]
  - PNEUMONIA [None]
  - PULMONARY EMBOLISM [None]
  - RESPIRATORY FAILURE [None]
  - SEPSIS [None]
